FAERS Safety Report 10071956 (Version 1)
Quarter: 2014Q2

REPORT INFORMATION
  Report Type: Spontaneous
  Country: FR (occurrence: FR)
  Receive Date: 20140411
  Receipt Date: 20140411
  Transmission Date: 20141212
  Serious: Yes (Hospitalization, Disabling)
  Sender: FDA-Public Use
  Company Number: FR-BRISTOL-MYERS SQUIBB COMPANY-20596888

PATIENT
  Age: 88 Year
  Sex: Male

DRUGS (9)
  1. COUMADINE [Suspect]
     Route: 048
     Dates: end: 20131014
  2. ATHYMIL [Concomitant]
  3. SERETIDE [Concomitant]
  4. SPIRIVA [Concomitant]
  5. CARDENSIEL [Concomitant]
  6. FUROSEMIDE [Concomitant]
  7. ATACAND [Concomitant]
  8. ATORVASTATIN [Concomitant]
  9. LEVOTHYROX [Concomitant]

REACTIONS (3)
  - Cerebral haematoma [Recovered/Resolved with Sequelae]
  - Syncope [Unknown]
  - Fall [Unknown]
